FAERS Safety Report 9643512 (Version 2)
Quarter: 2013Q4

REPORT INFORMATION
  Report Type: Spontaneous
  Country: JP (occurrence: JP)
  Receive Date: 20131024
  Receipt Date: 20131223
  Transmission Date: 20140711
  Serious: Yes (Other)
  Sender: FDA-Public Use
  Company Number: JP-PFIZER INC-2013299028

PATIENT
  Age: 26 Year
  Sex: Female

DRUGS (5)
  1. SOLANAX [Suspect]
     Dosage: UNK
     Route: 048
     Dates: start: 20130507, end: 20131010
  2. MYSLEE [Concomitant]
     Dosage: UNK
  3. UPNOL B [Concomitant]
     Dosage: UNK
  4. RISPERDAL OD [Concomitant]
     Dosage: UNK
  5. DOGMATYL [Concomitant]
     Dosage: UNK

REACTIONS (5)
  - Paraesthesia oral [Recovered/Resolved]
  - Oropharyngeal discomfort [Recovered/Resolved]
  - Swollen tongue [Recovered/Resolved]
  - Dyspnoea [Recovered/Resolved]
  - Somnolence [Recovered/Resolved]
